FAERS Safety Report 5315381-4 (Version None)
Quarter: 2007Q1

REPORT INFORMATION
  Report Type: 
  Country: None (occurrence: None)
  Receive Date: 20070130
  Receipt Date: 20060927
  Transmission Date: 20070707
  Serious: Yes (Other)
  Sender: FDA-Public Use
  Company Number: 147226USA

PATIENT
  Age: 31 Year
  Sex: Male
  Weight: 57.1532 kg

DRUGS (1)
  1. COPAXONE [Suspect]
     Indication: MULTIPLE SCLEROSIS
     Dosage: 20 MG (20 MG, ONCE A DAY), SUBCUTANEOUS
     Route: 058
     Dates: start: 20040914

REACTIONS (1)
  - ANGIOEDEMA [None]
